FAERS Safety Report 10255105 (Version 1)
Quarter: 2014Q2

REPORT INFORMATION
  Report Type: Spontaneous
  Country: CA (occurrence: CA)
  Receive Date: 20140624
  Receipt Date: 20140624
  Transmission Date: 20141212
  Serious: Yes (Hospitalization)
  Sender: FDA-Public Use
  Company Number: CA-PFIZER INC-2014168951

PATIENT
  Age: 31 Year
  Sex: Female

DRUGS (14)
  1. REVATIO [Suspect]
     Indication: PULMONARY ARTERIAL HYPERTENSION
     Dosage: 20 MG, 3X/DAY
     Route: 048
     Dates: start: 20111011
  2. FUROSEMIDE [Concomitant]
     Dosage: UNK
  3. SYNTHROID [Concomitant]
     Dosage: UNK
  4. ABILIFY [Concomitant]
     Dosage: UNK
  5. DIVALPROEX [Concomitant]
     Dosage: UNK
  6. DOM ZOPICLONE [Concomitant]
     Dosage: UNK
  7. POTASSIUM [Concomitant]
     Dosage: UNK
  8. PRO METFORMIN [Concomitant]
     Dosage: UNK
  9. PRO-QUETIAPINE [Concomitant]
     Dosage: UNK
  10. SINTROM [Concomitant]
     Dosage: UNK
  11. REMODULIN [Concomitant]
     Dosage: UNK
  12. WELLBUTRIN [Concomitant]
     Dosage: UNK
  13. COLACE [Concomitant]
     Dosage: UNK
  14. IRON [Concomitant]
     Dosage: UNK

REACTIONS (3)
  - Fluid retention [Recovered/Resolved]
  - Peripheral swelling [Recovered/Resolved]
  - Abdominal distension [Recovered/Resolved]
